FAERS Safety Report 6657142-X (Version None)
Quarter: 2010Q1

REPORT INFORMATION
  Report Type: 
  Country: None (occurrence: None)
  Receive Date: 20100330
  Receipt Date: 20100211
  Transmission Date: 20100710
  Serious: No
  Sender: FDA-Public Use
  Company Number: US-JNJFOC-20100206690

PATIENT
  Sex: Male

DRUGS (8)
  1. INVEGA [Suspect]
     Indication: SCHIZOPHRENIA
     Route: 048
  2. COGENTIN [Concomitant]
  3. BUPROPION HCL [Concomitant]
     Route: 048
  4. DEPAKOTE [Concomitant]
  5. COLACE [Concomitant]
     Route: 048
  6. METFORMIN HCL [Concomitant]
     Dosage: 1000 MG IN AM, 750 MG AT BEDTIME
     Route: 048
  7. PRILOSEC [Concomitant]
     Route: 048
  8. KEPPRA [Concomitant]
     Route: 048

REACTIONS (2)
  - DRUG INEFFECTIVE [None]
  - SCHIZOPHRENIA [None]
